FAERS Safety Report 25129596 (Version 3)
Quarter: 2025Q3

REPORT INFORMATION
  Report Type: Spontaneous
  Country: US (occurrence: US)
  Receive Date: 20250327
  Receipt Date: 20250728
  Transmission Date: 20251021
  Serious: Yes (Other)
  Sender: ELI LILLY AND COMPANY
  Company Number: US-ELI_LILLY_AND_COMPANY-US202503018425

PATIENT
  Age: 82 Year
  Sex: Male
  Weight: 63 kg

DRUGS (5)
  1. KISUNLA [Suspect]
     Active Substance: DONANEMAB-AZBT
     Indication: Dementia Alzheimer^s type
     Dosage: 700 MG, MONTHLY (1/M) (LOADING DOSE, FIRST INFUSION)
     Route: 042
     Dates: start: 20250203
  2. KISUNLA [Suspect]
     Active Substance: DONANEMAB-AZBT
     Dosage: 700 MG, MONTHLY (1/M)
     Route: 042
     Dates: start: 20250303, end: 20250331
  3. KISUNLA [Suspect]
     Active Substance: DONANEMAB-AZBT
     Dosage: 700 MG, MONTHLY (1/M) (RESTARTED)
     Route: 042
     Dates: start: 20250528
  4. KISUNLA [Suspect]
     Active Substance: DONANEMAB-AZBT
     Dosage: 700 MG, MONTHLY (1/M)
     Route: 042
     Dates: start: 20250625
  5. DONEPEZIL [Concomitant]
     Active Substance: DONEPEZIL
     Indication: Dementia Alzheimer^s type
     Route: 065

REACTIONS (4)
  - Amyloid related imaging abnormality-oedema/effusion [Recovering/Resolving]
  - Confusional state [Recovered/Resolved]
  - Fall [Unknown]
  - Vomiting [Recovered/Resolved]

NARRATIVE: CASE EVENT DATE: 20250217
